FAERS Safety Report 4546823-X (Version None)
Quarter: 2005Q1

REPORT INFORMATION
  Report Type: 
  Country: None (occurrence: None)
  Receive Date: 20050105
  Receipt Date: 20041216
  Transmission Date: 20050727
  Serious: Yes (Disabling)
  Sender: FDA-Public Use
  Company Number: GBS041216211

PATIENT
  Age: 45 Year
  Sex: Male
  Weight: 95 kg

DRUGS (3)
  1. FLUOXETINE [Suspect]
     Indication: DEPRESSION
     Dosage: 20 MG DAY
     Dates: start: 20020101
  2. NIQUITIN (NICOTINE POLACRILEX) [Concomitant]
  3. ALBUTEROL [Concomitant]

REACTIONS (2)
  - CEREBELLAR SYNDROME [None]
  - NYSTAGMUS [None]
